FAERS Safety Report 6263278-8 (Version None)
Quarter: 2009Q3

REPORT INFORMATION
  Report Type: 
  Country: None (occurrence: None)
  Receive Date: 20090708
  Receipt Date: 20090708
  Transmission Date: 20100115
  Serious: Yes (Hospitalization)
  Sender: FDA-Public Use
  Company Number: None

PATIENT
  Age: 45 Year
  Sex: Female
  Weight: 142 kg

DRUGS (1)
  1. WARFARIN SODIUM [Suspect]
     Indication: COAGULOPATHY
     Dosage: 7.5 MG PO
     Route: 048
     Dates: start: 20090601, end: 20090701

REACTIONS (3)
  - FALL [None]
  - HAEMORRHAGE [None]
  - INTERNATIONAL NORMALISED RATIO INCREASED [None]
